APPROVED DRUG PRODUCT: PREDNISONE
Active Ingredient: PREDNISONE
Strength: 2.5MG
Dosage Form/Route: TABLET;ORAL
Application: A208412 | Product #004 | TE Code: AB
Applicant: STRIDES PHARMA GLOBAL PTE LTD
Approved: Nov 20, 2020 | RLD: No | RS: No | Type: RX